FAERS Safety Report 16688306 (Version 1)
Quarter: 2019Q3

REPORT INFORMATION
  Report Type: Spontaneous
  Country: HU (occurrence: HU)
  Receive Date: 20190809
  Receipt Date: 20190809
  Transmission Date: 20191004
  Serious: Yes (Other)
  Sender: FDA-Public Use
  Company Number: HU-PFIZER INC-2019340492

PATIENT
  Age: 64 Year
  Sex: Male

DRUGS (13)
  1. BETALOC [METOPROLOL TARTRATE] [Concomitant]
     Active Substance: METOPROLOL TARTRATE
     Dosage: UNK
  2. XANAX [Suspect]
     Active Substance: ALPRAZOLAM
     Dosage: UNK
  3. SEDUXEN [DIAZEPAM] [Suspect]
     Active Substance: DIAZEPAM
     Dosage: 2 PILLS
  4. NOACID [ALUMINIUM HYDROXIDE] [Concomitant]
     Dosage: UNK
  5. TRITACE [Concomitant]
     Active Substance: RAMIPRIL
     Dosage: UNK
  6. MEZITAN [Concomitant]
     Dosage: UNK
  7. ATORIS [Concomitant]
     Active Substance: ATORVASTATIN CALCIUM
     Dosage: UNK
  8. ZYLLT [Concomitant]
     Active Substance: CLOPIDOGREL BISULFATE
     Dosage: UNK
  9. FEVARIN [Suspect]
     Active Substance: FLUVOXAMINE MALEATE
     Dosage: UNK
  10. RYTMONORM [Suspect]
     Active Substance: PROPAFENONE
     Dosage: 450 MG, 1X/DAY (150 MILLIGRAM, TID)
     Route: 048
  11. ALVESCO [Concomitant]
     Active Substance: CICLESONIDE
     Dosage: UNK
  12. NORMIX [Concomitant]
     Active Substance: RIFAXIMIN
     Dosage: UNK
  13. NITROMINT [Concomitant]
     Active Substance: NITROGLYCERIN
     Dosage: UNK

REACTIONS (3)
  - Bradycardia [Recovered/Resolved]
  - Abdominal pain upper [Recovered/Resolved]
  - Arrhythmia [Recovered/Resolved]
